FAERS Safety Report 7054476-4 (Version None)
Quarter: 2010Q4

REPORT INFORMATION
  Report Type: 
  Country: None (occurrence: None)
  Receive Date: 20101020
  Receipt Date: 20101008
  Transmission Date: 20110411
  Serious: Yes (Death, Hospitalization, Other)
  Sender: FDA-Public Use
  Company Number: CO-PFIZER INC-2010040581

PATIENT
  Age: 88 Year
  Sex: Male

DRUGS (8)
  1. XALATAN [Suspect]
     Dosage: UNK
     Route: 047
  2. EUTIROX [Concomitant]
     Indication: HYPOTHYROIDISM
     Dosage: 50 UG, 1X/DAY
  3. LOSARTAN [Concomitant]
     Indication: BLOOD PRESSURE
     Dosage: 50 MG, 2X/DAY
  4. AMLODIPINE [Concomitant]
     Indication: BLOOD PRESSURE
     Dosage: 25 MG, 1X/DAY
  5. HYDROCHLOROTHIAZIDE [Concomitant]
     Indication: BLOOD PRESSURE
     Dosage: 25 MG, 1X/DAY
  6. METOPROLOL [Concomitant]
     Indication: BLOOD PRESSURE
     Dosage: UNK
  7. SALBUTAMOL [Concomitant]
     Dosage: UNK
  8. BECLOMETASONE [Concomitant]
     Dosage: UNK

REACTIONS (6)
  - CHRONIC OBSTRUCTIVE PULMONARY DISEASE [None]
  - DEATH [None]
  - DIZZINESS [None]
  - LOSS OF CONSCIOUSNESS [None]
  - PNEUMONIA [None]
  - SYNCOPE [None]
